FAERS Safety Report 14901816 (Version 1)
Quarter: 2018Q2

REPORT INFORMATION
  Report Type: Spontaneous
  Country: US (occurrence: US)
  Receive Date: 20180516
  Receipt Date: 20180516
  Transmission Date: 20180711
  Serious: Yes (Other)
  Sender: FDA-Public Use
  Company Number: US-PFIZER INC-2018196654

PATIENT
  Age: 67 Year
  Sex: Female

DRUGS (3)
  1. METHOTREXATE SODIUM. [Suspect]
     Active Substance: METHOTREXATE SODIUM
     Dosage: 25 MG/ML
  2. AMOXICILLIN. [Suspect]
     Active Substance: AMOXICILLIN
     Dosage: 500 MG, UNK
  3. XELJANZ XR [Suspect]
     Active Substance: TOFACITINIB CITRATE
     Dosage: 11 MG, UNK

REACTIONS (14)
  - Muscular weakness [Unknown]
  - Myocardial infarction [Unknown]
  - Musculoskeletal stiffness [Unknown]
  - Tendonitis [Unknown]
  - Back pain [Unknown]
  - Pain in extremity [Unknown]
  - Joint injury [Unknown]
  - Arthralgia [Unknown]
  - Peripheral swelling [Unknown]
  - Spinal column stenosis [Unknown]
  - Osteoarthritis [Unknown]
  - Pain [Unknown]
  - Limb discomfort [Unknown]
  - Fall [Unknown]

NARRATIVE: CASE EVENT DATE: 201802
